FAERS Safety Report 5183462-4 (Version None)
Quarter: 2006Q4

REPORT INFORMATION
  Report Type: 
  Country: None (occurrence: None)
  Receive Date: 20061220
  Receipt Date: 20060116
  Transmission Date: 20070319
  Serious: No
  Sender: FDA-Public Use
  Company Number: US-GLAXOSMITHKLINE-A0589308A

PATIENT
  Age: 33 Year
  Sex: Male

DRUGS (1)
  1. MEMBERS MARK NTS ORIGINAL, 14MG [Suspect]
     Indication: SMOKING CESSATION THERAPY
     Dates: start: 20060116

REACTIONS (4)
  - APPLICATION SITE ERYTHEMA [None]
  - APPLICATION SITE INFLAMMATION [None]
  - APPLICATION SITE RASH [None]
  - DYSPNOEA [None]
